FAERS Safety Report 5699175-6 (Version None)
Quarter: 2008Q2

REPORT INFORMATION
  Report Type: 
  Country: None (occurrence: None)
  Receive Date: 20080407
  Receipt Date: 20080407
  Transmission Date: 20081010
  Serious: No
  Sender: FDA-Public Use
  Company Number: None

PATIENT
  Age: 41 Year
  Sex: Female
  Weight: 54.4316 kg

DRUGS (1)
  1. CYCLOGYL [Suspect]
     Indication: OPHTHALMOLOGICAL EXAMINATION
     Dosage: ONCE
     Dates: start: 20080403, end: 20080403

REACTIONS (4)
  - DIZZINESS [None]
  - FEELING HOT [None]
  - HEADACHE [None]
  - RESTLESSNESS [None]
